FAERS Safety Report 8442041 (Version 6)
Quarter: 2013Q4

REPORT INFORMATION
  Report Type: Spontaneous
  Country: US (occurrence: US)
  Receive Date: 20120305
  Receipt Date: 20131112
  Transmission Date: 20140711
  Serious: Yes (Other)
  Sender: FDA-Public Use
  Company Number: US-PFIZER INC-2012055541

PATIENT
  Age: 58 Year
  Sex: Male
  Weight: 56.69 kg

DRUGS (9)
  1. LYRICA [Suspect]
     Indication: NEURALGIA
     Dosage: 150 MG, 3X/DAY
     Route: 048
     Dates: end: 201205
  2. LYRICA [Suspect]
     Indication: SPINAL PAIN
     Dosage: 150 MG, 3X/DAY
     Route: 048
  3. LYRICA [Suspect]
     Indication: PAIN IN EXTREMITY
     Dosage: UNK
  4. ASA [Concomitant]
     Dosage: UNK
  5. HYDROCHLOROTHIAZIDE [Concomitant]
     Indication: HYPERTENSION
     Dosage: 25 MG, 1X/DAY
  6. VERAPAMIL [Concomitant]
     Dosage: UNK
  7. LISINOPRIL [Concomitant]
     Indication: HYPERTENSION
     Dosage: 5 MG, 1X/DAY
  8. PLAVIX [Concomitant]
     Dosage: UNK
  9. CRESTOR [Concomitant]
     Dosage: UNK

REACTIONS (4)
  - Limb discomfort [Unknown]
  - Neuropathy peripheral [Unknown]
  - Head discomfort [Unknown]
  - Confusional state [Recovered/Resolved]
